FAERS Safety Report 9408148 (Version 1)
Quarter: 2013Q3

REPORT INFORMATION
  Report Type: Spontaneous
  Country: US (occurrence: US)
  Receive Date: 20130718
  Receipt Date: 20130718
  Transmission Date: 20140515
  Serious: Yes (Other)
  Sender: FDA-Public Use
  Company Number: US-PFIZER INC-2013207952

PATIENT
  Age: 34 Year
  Sex: Male

DRUGS (6)
  1. HALOPERIDOL [Suspect]
     Indication: PSYCHOTIC DISORDER
     Dosage: UNK
  2. HYDROXYZINE PAMOATE [Suspect]
     Indication: PSYCHOTIC DISORDER
     Dosage: UNK
  3. CHLORPROMAZINE [Suspect]
     Indication: PSYCHOTIC DISORDER
     Dosage: UNK
  4. BENZTROPINE MESYLATE [Suspect]
     Indication: PSYCHOTIC DISORDER
     Dosage: UNK
  5. CITALOPRAM [Concomitant]
     Indication: PSYCHOTIC DISORDER
     Dosage: UNK
  6. DIVALPROEX [Concomitant]
     Indication: PSYCHOTIC DISORDER

REACTIONS (1)
  - Neuroleptic malignant syndrome [Unknown]
